FAERS Safety Report 4890840-7 (Version None)
Quarter: 2006Q1

REPORT INFORMATION
  Report Type: 
  Country: None (occurrence: None)
  Receive Date: 20060123
  Receipt Date: 20060117
  Transmission Date: 20060701
  Serious: Yes (Hospitalization, Other)
  Sender: FDA-Public Use
  Company Number: USA-2006-0022797

PATIENT
  Age: 68 Year
  Sex: Female

DRUGS (18)
  1. OXYCONTIN [Suspect]
     Indication: DIABETIC NEUROPATHY
     Dosage: SEE IMAGE
     Route: 048
     Dates: start: 20040917
  2. OXYCONTIN [Suspect]
     Indication: DIABETIC NEUROPATHY
     Dosage: SEE IMAGE
     Route: 048
     Dates: start: 20050727
  3. OXYCONTIN [Suspect]
     Indication: DIABETIC NEUROPATHY
     Dosage: SEE IMAGE
     Route: 048
     Dates: start: 20060116
  4. PERCOCET [Concomitant]
  5. AVANDIA [Concomitant]
  6. GLYBURIDE [Concomitant]
  7. COREG [Concomitant]
  8. NORVASC [Concomitant]
  9. REGLAN [Concomitant]
  10. PRILOSEC [Concomitant]
  11. PLAVIX [Concomitant]
  12. NEURONTIN [Concomitant]
  13. XANAX [Concomitant]
  14. IMIPRAMINE [Concomitant]
  15. GLUCOPHAGE [Concomitant]
  16. PROZAC [Concomitant]
  17. ARICEPT (DONPEZIL HYDROCHLORIDE) [Concomitant]
  18. LIPITOR [Concomitant]

REACTIONS (5)
  - CHEST PAIN [None]
  - HYPOXIA [None]
  - RENAL FAILURE ACUTE [None]
  - RESTRICTIVE PULMONARY DISEASE [None]
  - RHABDOMYOLYSIS [None]
